FAERS Safety Report 8490861-1 (Version None)
Quarter: 2012Q3

REPORT INFORMATION
  Report Type: 
  Country: None (occurrence: None)
  Receive Date: 20120706
  Receipt Date: 20120622
  Transmission Date: 20120928
  Serious: Yes (Hospitalization, Other)
  Sender: FDA-Public Use
  Company Number: CH-RANBAXY-2012RR-57516

PATIENT
  Age: 66 Year
  Sex: Female

DRUGS (2)
  1. COLOPHOS [Suspect]
     Indication: COLONOSCOPY
     Dosage: BOWEL PREPARATION
     Route: 065
  2. LISINOPRIL [Suspect]
     Indication: HYPERTENSION
     Route: 065

REACTIONS (2)
  - ACUTE PHOSPHATE NEPHROPATHY [None]
  - RENAL FAILURE ACUTE [None]
